FAERS Safety Report 6934015-6 (Version None)
Quarter: 2010Q3

REPORT INFORMATION
  Report Type: 
  Country: None (occurrence: None)
  Receive Date: 20100820
  Receipt Date: 20100810
  Transmission Date: 20110219
  Serious: Yes (Other)
  Sender: FDA-Public Use
  Company Number: JP-PFIZER INC-2010100130

PATIENT
  Age: 74 Year
  Sex: Female
  Weight: 77 kg

DRUGS (8)
  1. DOXAZOSIN MESYLATE [Suspect]
     Indication: HYPERTENSION
     Dosage: 2 MG, 2X/DAY
     Route: 048
     Dates: start: 20061118, end: 20061226
  2. PRAVASTATIN [Concomitant]
     Dosage: UNK
  3. VOGLIBOSE [Concomitant]
     Dosage: UNK
  4. CORINAE L [Concomitant]
     Dosage: UNK
  5. AMARYL [Concomitant]
     Dosage: UNK
  6. ACTOS [Concomitant]
     Dosage: UNK
  7. BLOPRESS [Concomitant]
     Dosage: UNK
  8. ACECOL [Concomitant]
     Dosage: UNK

REACTIONS (3)
  - FACE OEDEMA [None]
  - OEDEMA PERIPHERAL [None]
  - PALPITATIONS [None]
